FAERS Safety Report 8447524 (Version 2)
Quarter: 2015Q1

REPORT INFORMATION
  Report Type: Report from Study
  Country: US (occurrence: US)
  Receive Date: 20120308
  Receipt Date: 20150114
  Transmission Date: 20150721
  Serious: Yes (Death)
  Sender: FDA-Public Use
  Company Number: US-ROCHE-1046615

PATIENT
  Age: 52 Year
  Sex: Male

DRUGS (7)
  1. AVASTIN [Suspect]
     Active Substance: BEVACIZUMAB
     Indication: OESOPHAGEAL ADENOCARCINOMA
     Dosage: ON 13/APR/2011, BEVACIZUMAB 966 MG IN NACL 0.9% 100 ML, INFUSE OVER 60 MINS AT 100 ML/HR
     Route: 042
     Dates: start: 201104
  2. AVASTIN [Suspect]
     Active Substance: BEVACIZUMAB
     Indication: GASTRIC CANCER
  3. ZANTAC [Concomitant]
     Active Substance: RANITIDINE HYDROCHLORIDE
     Dosage: ON 13/APR/2011, ZANTAC 50 MG IN NACL 0.45% 50 ML, INFUSE OVER 15 MINS AT 200 MLS/HR
     Route: 042
  4. DILAUDID [Concomitant]
     Active Substance: HYDROMORPHONE HYDROCHLORIDE
     Route: 048
  5. AVASTIN [Suspect]
     Active Substance: BEVACIZUMAB
     Indication: GASTRIC CANCER
  6. ONXOL [Concomitant]
     Active Substance: PACLITAXEL
     Dosage: ON 13/APR/2011, PACLITAXEL 133 MG IN NACL 0.9% [EXCEL] 250 ML, INFUSE OVER 60 MINS AT 250 MLS/HR
     Route: 042
  7. DIPHENHYDRAMINE HCL [Concomitant]
     Active Substance: DIPHENHYDRAMINE HYDROCHLORIDE
     Dosage: ON 13/APR/2011, DIPHENHYDRAMINE 25 MG IN NACL 50 ML, 0.9% RTU, INFUSE OVER 15 MINS AT 200 MLS/HR
     Route: 042

REACTIONS (1)
  - Death [Fatal]

NARRATIVE: CASE EVENT DATE: 20110719
